FAERS Safety Report 9825895 (Version 1)
Quarter: 2013Q4

REPORT INFORMATION
  Report Type: Spontaneous
  Country: US (occurrence: None)
  Receive Date: 20131104
  Receipt Date: 20131104
  Transmission Date: 20140711
  Serious: Yes (Other)
  Sender: FDA-Public Use
  Company Number: 1000047974

PATIENT
  Sex: 0

DRUGS (6)
  1. DALIRESP [Suspect]
     Indication: CHRONIC OBSTRUCTIVE PULMONARY DISEASE
     Route: 048
     Dates: start: 201305, end: 201307
  2. LEVOTHYROXINE (LEVOTHYROXINE SODIUM) (LEVOTHYROXINE SODIUM) [Concomitant]
  3. LOSARTAN (LOSARTAN) (LOSARTAN) [Concomitant]
  4. FUROSEMIDE (FUROSEMIDE) (FUROSEMIDE) [Concomitant]
  5. ALPRAZOLAM (ALPRAZOLAM) (ALPRAZOLAM) [Concomitant]
  6. PRAVASTATIN (PRAVASTATIN) (PRAVASTATIN) [Concomitant]

REACTIONS (2)
  - Anxiety [None]
  - Tremor [None]
